FAERS Safety Report 4443539-5 (Version None)
Quarter: 2004Q3

REPORT INFORMATION
  Report Type: 
  Country: None (occurrence: None)
  Receive Date: 20040901
  Receipt Date: 20040825
  Transmission Date: 20050211
  Serious: No
  Sender: FDA-Public Use
  Company Number: ZONI002014

PATIENT
  Age: 43 Year
  Sex: Female

DRUGS (3)
  1. EXCEGRAN (ZONISAMIDE) [Suspect]
     Dosage: ORAL
     Route: 048
  2. DEPAKENE [Suspect]
     Dosage: ORAL
     Route: 048
  3. PHENOBARBITAL TAB [Concomitant]

REACTIONS (7)
  - DRUG INEFFECTIVE [None]
  - HUMAN HERPES VIRUS 6 SEROLOGY POSITIVE [None]
  - HYPERSENSITIVITY [None]
  - LYMPHADENOPATHY [None]
  - LYMPHOCYTE MORPHOLOGY ABNORMAL [None]
  - LYMPHOCYTE STIMULATION TEST POSITIVE [None]
  - MULTI-ORGAN FAILURE [None]
